FAERS Safety Report 5976378-4 (Version None)
Quarter: 2008Q4

REPORT INFORMATION
  Report Type: 
  Country: None (occurrence: None)
  Receive Date: 20081202
  Receipt Date: 20081125
  Transmission Date: 20090506
  Serious: Yes (Death, Hospitalization, Other)
  Sender: FDA-Public Use
  Company Number: IE-ROXANE LABORATORIES, INC.-2008-RO-00284RO

PATIENT
  Age: 23 Month
  Sex: Male

DRUGS (8)
  1. DEXAMETHASONE 0.5MG TAB [Suspect]
     Indication: ACUTE LYMPHOCYTIC LEUKAEMIA
  2. FLUCONAZOLE [Suspect]
     Indication: FUNGAL INFECTION
  3. VINCRISTINE [Suspect]
     Indication: ACUTE LYMPHOCYTIC LEUKAEMIA
  4. ASPARAGINASE [Suspect]
     Indication: ACUTE LYMPHOCYTIC LEUKAEMIA
  5. BROADSPECTRUM ANTIBIOTICS [Suspect]
     Indication: SYSTEMIC CANDIDA
  6. AMPHOTERICIN B [Suspect]
     Indication: SYSTEMIC CANDIDA
  7. AMPHOTERICIN B [Suspect]
  8. NEUPOGEN [Suspect]
     Indication: SYSTEMIC CANDIDA

REACTIONS (7)
  - DEATH [None]
  - DERMATITIS [None]
  - FUNGAL INFECTION [None]
  - NEUTROPENIA [None]
  - PNEUMONITIS [None]
  - PNEUMOTHORAX [None]
  - SYSTEMIC CANDIDA [None]
